FAERS Safety Report 9178731 (Version 1)
Quarter: 2013Q1

REPORT INFORMATION
  Report Type: Spontaneous
  Country: US (occurrence: US)
  Receive Date: 20130321
  Receipt Date: 20130321
  Transmission Date: 20140127
  Serious: Yes (Hospitalization)
  Sender: FDA-Public Use
  Company Number: US-ROCHE-1201122

PATIENT
  Sex: Male

DRUGS (4)
  1. ZELBORAF [Suspect]
     Indication: MALIGNANT MELANOMA
     Dosage: LAST DOSE 21/JAN/2013
     Route: 065
     Dates: start: 2011
  2. ZELBORAF [Suspect]
     Route: 065
     Dates: start: 201202
  3. ZELBORAF [Suspect]
     Route: 065
  4. ZELBORAF [Suspect]
     Route: 065
     Dates: start: 201209

REACTIONS (9)
  - Stevens-Johnson syndrome [Unknown]
  - Delusion [Unknown]
  - Dehydration [Unknown]
  - Nausea [Unknown]
  - Weight decreased [Unknown]
  - Expired drug administered [Unknown]
  - Pain [Unknown]
  - Vomiting [Unknown]
  - Erythema [Unknown]
